FAERS Safety Report 9688252 (Version 4)
Quarter: 2014Q1

REPORT INFORMATION
  Report Type: Spontaneous
  Country: CZ (occurrence: CZ)
  Receive Date: 20131114
  Receipt Date: 20140203
  Transmission Date: 20141002
  Serious: Yes (Other)
  Sender: FDA-Public Use
  Company Number: CZ-NOVOPROD-392051

PATIENT
  Age: 42 Year
  Sex: Male
  Weight: 90 kg

DRUGS (12)
  1. NOVORAPID FLEXPEN [Suspect]
     Indication: DIABETES MELLITUS
     Dosage: DOSAGE: 14 U. IN MORNING, 20 U. IN MIDDAY, 16 U. IN EVENING
     Route: 058
     Dates: start: 20130910
  2. NOVORAPID FLEXPEN [Suspect]
     Dosage: DOSAGE: 14 U. IN MORNING, 20 U. IN MIDDAY, 16 U. IN EVENING
     Route: 058
     Dates: start: 201310
  3. NOVORAPID FLEXPEN [Suspect]
     Dosage: DOSAGE: 14 U. IN MORNING, 20 U. IN MIDDAY, 16 U. IN EVENING
  4. LEVEMIR [Concomitant]
     Dosage: STABLE DOSE
     Route: 058
  5. LEVEMIR [Concomitant]
     Route: 058
  6. LUSOPRESS [Concomitant]
     Dosage: UNK TAB, BID
     Route: 048
  7. LUSOPRESS [Concomitant]
     Route: 048
  8. COMBIGAN [Concomitant]
     Dosage: EYE DROPS, BID
  9. AZOPT [Concomitant]
     Dosage: EYE DROPS, TID
  10. XALATAN [Concomitant]
     Dosage: EYE DROPS, QD
  11. LOZAP                              /00661201/ [Concomitant]
     Dosage: UNK TAB, QD
     Route: 048
  12. LOZAP [Concomitant]
     Route: 048

REACTIONS (4)
  - Malaise [Recovering/Resolving]
  - Thirst [Recovering/Resolving]
  - Disturbance in attention [Recovering/Resolving]
  - Fatigue [Recovering/Resolving]
